FAERS Safety Report 5841842-5 (Version None)
Quarter: 2008Q3

REPORT INFORMATION
  Report Type: 
  Country: None (occurrence: None)
  Receive Date: 20080812
  Receipt Date: 20080807
  Transmission Date: 20090109
  Serious: Yes (Other)
  Sender: FDA-Public Use
  Company Number: B0532756A

PATIENT
  Age: 6 Month
  Sex: Male

DRUGS (1)
  1. AUGMENTIN [Suspect]
     Indication: BRONCHITIS
     Route: 048

REACTIONS (1)
  - DIARRHOEA HAEMORRHAGIC [None]
